FAERS Safety Report 14085323 (Version 5)
Quarter: 2018Q4

REPORT INFORMATION
  Report Type: Spontaneous
  Country: US (occurrence: US)
  Receive Date: 20171013
  Receipt Date: 20181019
  Transmission Date: 20190204
  Serious: Yes (Other)
  Sender: FDA-Public Use
  Company Number: US-PFIZER INC-2017441783

PATIENT
  Age: 75 Year
  Sex: Female

DRUGS (6)
  1. XELODA [Suspect]
     Active Substance: CAPECITABINE
     Indication: BREAST CANCER METASTATIC
     Dosage: 500 MG, CYCLIC, (TWICE PO DAY. 5 DAYS ON, TWO DAYS OFF)
     Route: 048
     Dates: start: 201603
  2. TAMOXIFEN [Suspect]
     Active Substance: TAMOXIFEN
     Dosage: UNK
     Dates: start: 201602, end: 201604
  3. PAMIDRONATE DISODIUM. [Suspect]
     Active Substance: PAMIDRONATE DISODIUM
     Indication: BONE DISORDER
  4. LETROZOLE. [Suspect]
     Active Substance: LETROZOLE
     Indication: BREAST CANCER METASTATIC
     Dosage: 2.5 MG, DAILY
     Dates: start: 201605
  5. IBRANCE [Suspect]
     Active Substance: PALBOCICLIB
     Indication: BREAST CANCER METASTATIC
     Dosage: 125 MG, CYCLIC, (ONCE PO DAY, 3 WEEKS ON ONE WEEK OFF)
     Route: 048
     Dates: start: 201602
  6. PAMIDRONATE DISODIUM. [Suspect]
     Active Substance: PAMIDRONATE DISODIUM
     Indication: BREAST CANCER METASTATIC
     Dosage: 90 MG, MONTHLY INFUSION
     Dates: start: 2009

REACTIONS (6)
  - Mean cell volume increased [Unknown]
  - Deep vein thrombosis [Unknown]
  - Sciatica [Recovered/Resolved]
  - Intervertebral disc protrusion [Recovered/Resolved]
  - Nasopharyngitis [Recovered/Resolved]
  - Pulmonary embolism [Unknown]
